FAERS Safety Report 23437105 (Version 3)
Quarter: 2024Q1

REPORT INFORMATION
  Report Type: Spontaneous
  Country: JP (occurrence: JP)
  Receive Date: 20240124
  Receipt Date: 20240213
  Transmission Date: 20240410
  Serious: Yes (Hospitalization, Other)
  Sender: FDA-Public Use
  Company Number: JP-ADVANZ PHARMA-202401000515

PATIENT

DRUGS (6)
  1. ZONISAMIDE [Suspect]
     Active Substance: ZONISAMIDE
     Indication: Severe myoclonic epilepsy of infancy
     Dosage: 200 MG, QD (5 YEARS OR MORE)
     Route: 048
  2. VALPROATE SODIUM [Suspect]
     Active Substance: VALPROATE SODIUM
     Indication: Severe myoclonic epilepsy of infancy
     Dosage: UNK UNK, QD (1800 MG-3200MG/DAY, 5 YEARS OR MORE)
     Route: 048
  3. MYSTAN [Suspect]
     Active Substance: CLOBAZAM
     Indication: Severe myoclonic epilepsy of infancy
     Dosage: UNK UNK, QD (10 MG-20MG/ DAY)
     Route: 048
  4. SODIUM BROMIDE [Suspect]
     Active Substance: SODIUM BROMIDE
     Indication: Severe myoclonic epilepsy of infancy
     Dosage: 3.8 G, QD (5 YEARS OR MORE)
     Route: 048
  5. FYCOMPA [Suspect]
     Active Substance: PERAMPANEL
     Indication: Severe myoclonic epilepsy of infancy
     Dosage: UNK UNK, QD (1MG -8MG/DAY)
     Route: 048
  6. LEVETIRACETAM [Concomitant]
     Active Substance: LEVETIRACETAM
     Dosage: UNK

REACTIONS (8)
  - Hyperthermia [Unknown]
  - Restlessness [Unknown]
  - Dysphagia [Unknown]
  - Skin infection [Unknown]
  - Urinary tract infection [Unknown]
  - Pneumonia [Unknown]
  - Pneumonia aspiration [Unknown]
  - Status epilepticus [Recovering/Resolving]
